FAERS Safety Report 6189189-4 (Version None)
Quarter: 2009Q2

REPORT INFORMATION
  Report Type: 
  Country: None (occurrence: None)
  Receive Date: 20090513
  Receipt Date: 20090506
  Transmission Date: 20091009
  Serious: Yes (Hospitalization)
  Sender: FDA-Public Use
  Company Number: US-CELGENEUS-163-20785-09050356

PATIENT
  Sex: Male

DRUGS (3)
  1. THALOMID [Suspect]
     Indication: MULTIPLE MYELOMA
     Route: 048
     Dates: start: 20090401
  2. THALOMID [Suspect]
     Route: 048
     Dates: start: 20090201
  3. THALOMID [Suspect]
     Route: 048
     Dates: start: 20090301

REACTIONS (1)
  - PHARYNGEAL HAEMORRHAGE [None]
